FAERS Safety Report 9844481 (Version 1)
Quarter: 2014Q1

REPORT INFORMATION
  Report Type: Spontaneous
  Country: US (occurrence: None)
  Receive Date: 20140123
  Receipt Date: 20140123
  Transmission Date: 20141002
  Serious: Yes (Life-Threatening)
  Sender: FDA-Public Use
  Company Number: None

PATIENT
  Age: 34 Year
  Sex: Female
  Weight: 111.59 kg

DRUGS (1)
  1. MIRENA [Suspect]
     Indication: CONTRACEPTION
     Dosage: 1 EVERY 5 YEARS   1 EVERY 5 YEARS
     Dates: start: 20081231, end: 20131226

REACTIONS (7)
  - Vaginal haemorrhage [None]
  - Pelvic discomfort [None]
  - Back pain [None]
  - Pregnancy with contraceptive device [None]
  - Maternal exposure during pregnancy [None]
  - Drug effect decreased [None]
  - Abortion spontaneous [None]
